FAERS Safety Report 5823222-1 (Version None)
Quarter: 2008Q3

REPORT INFORMATION
  Report Type: 
  Country: None (occurrence: None)
  Receive Date: 20080725
  Receipt Date: 20080721
  Transmission Date: 20090109
  Serious: Yes (Hospitalization)
  Sender: FDA-Public Use
  Company Number: US-ABBOTT-08P-163-0464525-00

PATIENT
  Sex: Male
  Weight: 94.432 kg

DRUGS (5)
  1. HUMIRA [Suspect]
     Indication: CROHN'S DISEASE
     Route: 050
     Dates: start: 20070101, end: 20070201
  2. HUMIRA [Suspect]
     Indication: IRRITABLE BOWEL SYNDROME
     Dates: start: 20070201, end: 20071101
  3. HUMIRA [Suspect]
     Indication: COLITIS ULCERATIVE
     Dates: start: 20071101
  4. LIALDA [Concomitant]
     Indication: COLITIS ULCERATIVE
     Dosage: 1.2 GM, 4 TABLETS DAILY
     Route: 048
     Dates: start: 20080201
  5. MESALAMINE [Concomitant]
     Indication: DRUG USE FOR UNKNOWN INDICATION

REACTIONS (4)
  - ACCIDENTAL EXPOSURE [None]
  - DEHYDRATION [None]
  - DIPLOPIA [None]
  - DRUG INEFFECTIVE [None]
